FAERS Safety Report 22305712 (Version 2)
Quarter: 2023Q2

REPORT INFORMATION
  Report Type: Report from Study
  Country: BR (occurrence: None)
  Receive Date: 20230510
  Receipt Date: 20230606
  Transmission Date: 20230721
  Serious: Yes (Hospitalization, Other)
  Sender: FDA-Public Use
  Company Number: BR-Merck Healthcare KGaA-9357551

PATIENT
  Age: 32 Year
  Sex: Female

DRUGS (1)
  1. INTERFERON BETA-1A [Suspect]
     Active Substance: INTERFERON BETA-1A
     Indication: Multiple sclerosis
     Route: 058
     Dates: start: 20190805

REACTIONS (8)
  - Seizure [Recovering/Resolving]
  - Arterial disorder [Unknown]
  - Hemiparaesthesia [Recovering/Resolving]
  - Vasculitis [Recovering/Resolving]
  - Eye pain [Recovering/Resolving]
  - Gait disturbance [Recovering/Resolving]
  - Neuralgia [Recovering/Resolving]
  - Dizziness [Recovering/Resolving]

NARRATIVE: CASE EVENT DATE: 20220930
